FAERS Safety Report 8645264 (Version 2)
Quarter: 2014Q1

REPORT INFORMATION
  Report Type: Spontaneous
  Country: US (occurrence: None)
  Receive Date: 20120323
  Receipt Date: 20130305
  Transmission Date: 20141002
  Serious: Yes (Hospitalization)
  Sender: FDA-Public Use
  Company Number: 163-21880-11101843

PATIENT
  Age: 53 Year
  Sex: Female

DRUGS (1)
  1. REVLIMID [Suspect]
     Indication: PLASMA CELL MYELOMA
     Dosage: 10 MG, 1 IN 1 D, PO 25 MG, 1 IN 1 D, PO 10-25MG, PO
     Route: 048
     Dates: start: 2011

REACTIONS (4)
  - Infection [None]
  - Pyrexia [None]
  - Sepsis [None]
  - Diarrhoea [None]
